FAERS Safety Report 21439261 (Version 2)
Quarter: 2022Q4

REPORT INFORMATION
  Report Type: Spontaneous
  Country: CN (occurrence: CN)
  Receive Date: 20221011
  Receipt Date: 20221025
  Transmission Date: 20230112
  Serious: Yes (Other)
  Sender: FDA-Public Use
  Company Number: ALC2022CN004706

PATIENT
  Age: 3 Year
  Sex: Female
  Weight: 14 kg

DRUGS (1)
  1. CYCLOGYL [Suspect]
     Active Substance: CYCLOPENTOLATE HYDROCHLORIDE
     Indication: Pupil dilation procedure
     Dosage: 1 DRP, QID
     Dates: start: 20220921, end: 20220921

REACTIONS (1)
  - Nervous system disorder [Unknown]

NARRATIVE: CASE EVENT DATE: 20220921
